FAERS Safety Report 4990095-9 (Version None)
Quarter: 2006Q2

REPORT INFORMATION
  Report Type: 
  Country: None (occurrence: None)
  Receive Date: 20060503
  Receipt Date: 20051114
  Transmission Date: 20061013
  Serious: Yes (Death, Hospitalization)
  Sender: FDA-Public Use
  Company Number: US-MERCK-0511USA02633

PATIENT
  Age: 72 Year
  Sex: Female
  Weight: 86 kg

DRUGS (13)
  1. VIOXX [Suspect]
     Indication: RHEUMATOID ARTHRITIS
     Route: 048
     Dates: start: 19991004, end: 20001114
  2. VIOXX [Suspect]
     Route: 048
     Dates: start: 19991004, end: 20001114
  3. MACROBID [Concomitant]
     Route: 065
  4. MECLIZINE [Concomitant]
     Route: 065
  5. ZOLOFT [Concomitant]
     Route: 065
  6. SMZ-TMP [Concomitant]
     Route: 065
  7. PREDNISONE [Concomitant]
     Route: 065
  8. CIPROFLOXACIN HCL [Concomitant]
     Route: 065
  9. SPIRONOLACTONE [Concomitant]
     Route: 065
  10. CLONIDINE [Concomitant]
     Route: 065
  11. K-DUR 10 [Concomitant]
     Route: 065
  12. GLUCOPHAGE [Concomitant]
     Route: 065
  13. CELEBREX [Concomitant]
     Route: 065
     Dates: start: 20000201, end: 20000301

REACTIONS (7)
  - ARTERIAL DISORDER [None]
  - BRAIN STEM INFARCTION [None]
  - CELLULITIS [None]
  - CEREBROVASCULAR ACCIDENT [None]
  - FALL [None]
  - SUBCUTANEOUS ABSCESS [None]
  - URINARY TRACT INFECTION [None]
